FAERS Safety Report 5960204-3 (Version None)
Quarter: 2008Q4

REPORT INFORMATION
  Report Type: 
  Country: None (occurrence: None)
  Receive Date: 20081120
  Receipt Date: 20081114
  Transmission Date: 20090506
  Serious: No
  Sender: FDA-Public Use
  Company Number: AU-ASTRAZENECA-2008AP08891

PATIENT
  Age: 548 Month
  Sex: Male

DRUGS (4)
  1. SEROQUEL [Suspect]
     Indication: SCHIZOPHRENIA
     Route: 048
     Dates: start: 20081106
  2. SEROQUEL [Suspect]
     Dosage: 100 MG TDS PRN
     Route: 048
     Dates: start: 20081106
  3. RISPERDAL CONSTA [Concomitant]
  4. FLUVOXAMINE MALEATE [Concomitant]

REACTIONS (1)
  - THROMBOCYTOPENIA [None]
